FAERS Safety Report 4612307-3 (Version None)
Quarter: 2005Q1

REPORT INFORMATION
  Report Type: 
  Country: None (occurrence: None)
  Receive Date: 20050316
  Receipt Date: 20050219
  Transmission Date: 20050727
  Serious: Yes (Disabling)
  Sender: FDA-Public Use
  Company Number: 213020

PATIENT
  Age: 55 Year
  Sex: Female
  Weight: 86.2 kg

DRUGS (8)
  1. XOLAIR [Suspect]
     Indication: ASTHMA
     Dosage: 150 MG, 1/MONTH, SUBCUTANEOUS
     Route: 058
     Dates: start: 20040130
  2. SPIRIVA [Concomitant]
  3. EFFEXOR [Concomitant]
  4. XANAX [Concomitant]
  5. ADVAIR (SALMETEROL XINAFOATE, FLUTICASONE PROPIONATE) [Concomitant]
  6. ENTEX LA (GUAIFENESIN, PHENYLEPHRINE HYDROCHLORIDE) [Concomitant]
  7. SINGULAIR [Concomitant]
  8. MEDROXYPROGESTERONE ACETATE [Concomitant]

REACTIONS (1)
  - MUSCULOSKELETAL STIFFNESS [None]
